FAERS Safety Report 8874788 (Version 2)
Quarter: 2013Q3

REPORT INFORMATION
  Report Type: Spontaneous
  Country: US (occurrence: US)
  Receive Date: 20121023
  Receipt Date: 20130830
  Transmission Date: 20140515
  Serious: No
  Sender: FDA-Public Use
  Company Number: US-PFIZER INC-2012262034

PATIENT
  Age: 62 Year
  Sex: Male
  Weight: 109 kg

DRUGS (4)
  1. EFFEXOR XR [Suspect]
     Indication: DEPRESSION
     Dosage: 75 MG, UNK
  2. EFFEXOR XR [Suspect]
     Dosage: 150 MG, UNK
  3. EFFEXOR XR [Suspect]
     Dosage: 175 MG, UNK
  4. EFFEXOR XR [Suspect]
     Dosage: 225 MG, DAILY

REACTIONS (1)
  - Drug ineffective [Unknown]
